FAERS Safety Report 13320744 (Version 1)
Quarter: 2017Q1

REPORT INFORMATION
  Report Type: Spontaneous
  Country: US (occurrence: US)
  Receive Date: 20170309
  Receipt Date: 20170309
  Transmission Date: 20170428
  Serious: No
  Sender: FDA-Public Use
  Company Number: US-TEVA-723498ACC

PATIENT
  Age: 78 Year
  Sex: Male

DRUGS (1)
  1. DORZOTIMOLSLN-A [Suspect]
     Active Substance: DORZOLAMIDE\TIMOLOL

REACTIONS (2)
  - Eye pain [Unknown]
  - Product quality issue [Unknown]

NARRATIVE: CASE EVENT DATE: 20161005
